FAERS Safety Report 4489403-7 (Version None)
Quarter: 2004Q4

REPORT INFORMATION
  Report Type: 
  Country: None (occurrence: None)
  Receive Date: 20041026
  Receipt Date: 20041013
  Transmission Date: 20050328
  Serious: Yes (Death, Hospitalization)
  Sender: FDA-Public Use
  Company Number: 2004078753

PATIENT
  Age: 72 Year
  Sex: Male

DRUGS (1)
  1. LIPITOR [Suspect]
     Indication: DYSLIPIDAEMIA
     Dosage: 10 MG (10 MG, 1 IN 1D ), ORAL
     Route: 048
     Dates: start: 20030601

REACTIONS (3)
  - BLOOD PRESSURE DECREASED [None]
  - CANCER PAIN [None]
  - PANCREATIC CARCINOMA [None]
